FAERS Safety Report 25087052 (Version 2)
Quarter: 2025Q2

REPORT INFORMATION
  Report Type: Spontaneous
  Country: US (occurrence: US)
  Receive Date: 20250318
  Receipt Date: 20250419
  Transmission Date: 20250717
  Serious: Yes (Other)
  Sender: APOTEX
  Company Number: US-APOTEX-2025AP003166

PATIENT
  Age: 34 Year
  Sex: Female

DRUGS (4)
  1. GLEEVEC [Suspect]
     Active Substance: IMATINIB MESYLATE
     Indication: Chronic myeloid leukaemia
     Dosage: 200 MILLIGRAM, QD
     Route: 065
  2. GLEEVEC [Suspect]
     Active Substance: IMATINIB MESYLATE
     Dosage: 400 MILLIGRAM, QD
     Route: 065
  3. GLEEVEC [Suspect]
     Active Substance: IMATINIB MESYLATE
     Route: 065
  4. ALBENDAZOLE [Concomitant]
     Active Substance: ALBENDAZOLE
     Indication: Product used for unknown indication
     Route: 065

REACTIONS (1)
  - Leukopenia [Unknown]
